FAERS Safety Report 4927105-0 (Version None)
Quarter: 2006Q1

REPORT INFORMATION
  Report Type: 
  Country: None (occurrence: None)
  Receive Date: 20060222
  Receipt Date: 20060216
  Transmission Date: 20060701
  Serious: Yes (Other)
  Sender: FDA-Public Use
  Company Number: S06-USA-00553-01

PATIENT
  Age: 32 Year
  Sex: Female

DRUGS (2)
  1. LEXAPRO [Suspect]
  2. COUMADIN [Concomitant]

REACTIONS (3)
  - COMPLICATIONS OF MATERNAL EXPOSURE TO THERAPEUTIC DRUGS [None]
  - CONVULSION [None]
  - PREGNANCY [None]
